FAERS Safety Report 9969173 (Version 1)
Quarter: 2014Q1

REPORT INFORMATION
  Report Type: Spontaneous
  Country: US (occurrence: US)
  Receive Date: 20140306
  Receipt Date: 20140306
  Transmission Date: 20141002
  Serious: No
  Sender: FDA-Public Use
  Company Number: US-ABBVIE-13P-163-1140019-00

PATIENT
  Age: 77 Year
  Sex: Male
  Weight: 85.81 kg

DRUGS (7)
  1. HUMIRA [Suspect]
     Indication: ANKYLOSING SPONDYLITIS
  2. DICLOFENAC [Concomitant]
     Indication: ANKYLOSING SPONDYLITIS
  3. AMBESOL [Concomitant]
     Indication: GASTROINTESTINAL DISORDER
  4. HYDROCHLOROTHIAZIDE [Concomitant]
     Indication: HYPERTENSION
  5. SIMVASTATIN [Concomitant]
     Indication: BLOOD CHOLESTEROL INCREASED
  6. VITAMIN D [Concomitant]
     Indication: VITAMIN D DEFICIENCY
  7. CALCIUM [Concomitant]
     Indication: BONE DISORDER

REACTIONS (3)
  - Papule [Recovered/Resolved]
  - Dermatitis contact [Recovered/Resolved]
  - Dermatitis contact [Recovered/Resolved]
